FAERS Safety Report 8239513-3 (Version None)
Quarter: 2012Q1

REPORT INFORMATION
  Report Type: 
  Country: None (occurrence: None)
  Receive Date: 20120328
  Receipt Date: 20120326
  Transmission Date: 20120608
  Serious: Yes (Other)
  Sender: FDA-Public Use
  Company Number: US-PFIZER INC-2012032352

PATIENT

DRUGS (8)
  1. CORDARONE [Suspect]
     Dosage: 100 MG, 2X/DAY
     Route: 048
  2. OMEPRAZOLE [Concomitant]
     Dosage: UNK
  3. CORDARONE [Suspect]
     Indication: ATRIAL FIBRILLATION
     Dosage: 800 MG, 2X/DAY
     Route: 048
  4. ROSUVASTATIN CALCIUM [Concomitant]
     Dosage: UNK
  5. COUMADIN [Concomitant]
     Dosage: UNK
  6. ASPIRIN [Concomitant]
     Dosage: UNK
  7. CORDARONE [Suspect]
     Dosage: 400 MG, 2X/DAY
     Route: 048
  8. METOPROLOL [Concomitant]
     Dosage: UNK

REACTIONS (8)
  - FALL [None]
  - TREMOR [None]
  - HEADACHE [None]
  - NAUSEA [None]
  - VOMITING [None]
  - COUGH [None]
  - CONSTIPATION [None]
  - ATAXIA [None]
